FAERS Safety Report 5424764-3 (Version None)
Quarter: 2007Q3

REPORT INFORMATION
  Report Type: 
  Country: None (occurrence: None)
  Receive Date: 20070824
  Receipt Date: 20070816
  Transmission Date: 20080115
  Serious: Yes (Hospitalization)
  Sender: FDA-Public Use
  Company Number: GB-AMGEN-US239883

PATIENT
  Sex: Female
  Weight: 107 kg

DRUGS (9)
  1. ENBREL [Suspect]
     Indication: RHEUMATOID ARTHRITIS
     Route: 058
     Dates: start: 20030505, end: 20040210
  2. ENBREL [Suspect]
     Route: 058
     Dates: start: 20040224, end: 20040601
  3. ENBREL [Suspect]
     Route: 058
     Dates: start: 20040709, end: 20060324
  4. ENBREL [Suspect]
     Route: 058
     Dates: start: 20060508
  5. NEXIUM [Concomitant]
     Route: 048
  6. BENDROFLUAZIDE [Concomitant]
     Indication: HYPERTENSION
     Route: 048
  7. LOSEC I.V. [Concomitant]
     Route: 048
  8. KAPAKE [Concomitant]
     Indication: ARTHRALGIA
     Route: 048
  9. ATENOLOL [Concomitant]
     Indication: HYPERTENSION
     Route: 048

REACTIONS (1)
  - SURGERY [None]
